FAERS Safety Report 11045824 (Version 1)
Quarter: 2015Q2

REPORT INFORMATION
  Report Type: Spontaneous
  Country: KZ (occurrence: KZ)
  Receive Date: 20150417
  Receipt Date: 20150417
  Transmission Date: 20150821
  Serious: Yes (Other)
  Sender: FDA-Public Use
  Company Number: CHPA2015KZ005089

PATIENT
  Age: 20 Year
  Sex: Male

DRUGS (2)
  1. THERAFLU ACETAM/PHENIR/PHENEPH [Suspect]
     Active Substance: ACETAMINOPHEN\PHENIRAMINE MALEATE\PHENYLEPHRINE HYDROCHLORIDE
     Indication: HEADACHE
  2. THERAFLU ACETAM/PHENIR/PHENEPH [Suspect]
     Active Substance: ACETAMINOPHEN\PHENIRAMINE MALEATE\PHENYLEPHRINE HYDROCHLORIDE
     Indication: NASOPHARYNGITIS
     Dosage: 1 DF, UNK
     Route: 048
     Dates: start: 20150407

REACTIONS (4)
  - Angioedema [Recovering/Resolving]
  - Eyelid ptosis [Recovering/Resolving]
  - Swelling face [Recovering/Resolving]
  - Ear haemorrhage [Recovering/Resolving]

NARRATIVE: CASE EVENT DATE: 20150408
